FAERS Safety Report 24426027 (Version 2)
Quarter: 2025Q3

REPORT INFORMATION
  Report Type: Spontaneous
  Country: EU (occurrence: EU)
  Receive Date: 20241011
  Receipt Date: 20250803
  Transmission Date: 20251020
  Serious: Yes (Hospitalization, Other)
  Sender: ALEXION PHARMACEUTICALS
  Company Number: EU-AstraZeneca-CH-00720871A

PATIENT
  Sex: Female

DRUGS (2)
  1. IMFINZI [Suspect]
     Active Substance: DURVALUMAB
     Indication: Bile duct cancer
     Route: 065
  2. IMJUDO [Suspect]
     Active Substance: TREMELIMUMAB\TREMELIMUMAB-ACTL
     Indication: Bile duct cancer

REACTIONS (7)
  - Anaemia [Unknown]
  - Bone pain [Unknown]
  - Asthenia [Unknown]
  - Myalgia [Unknown]
  - Osteoarthritis [Unknown]
  - Memory impairment [Unknown]
  - Vein disorder [Unknown]
